FAERS Safety Report 12743944 (Version 1)
Quarter: 2016Q3

REPORT INFORMATION
  Report Type: Spontaneous
  Country: PT (occurrence: PT)
  Receive Date: 20160914
  Receipt Date: 20160914
  Transmission Date: 20161109
  Serious: Yes (Hospitalization)
  Sender: FDA-Public Use
  Company Number: PT-MYLANLABS-2016M1037898

PATIENT

DRUGS (1)
  1. DOXORUBICIN [Suspect]
     Active Substance: DOXORUBICIN
     Indication: BREAST CANCER
     Dosage: UNK
     Route: 065

REACTIONS (10)
  - Ischaemic stroke [Recovered/Resolved]
  - Hemianaesthesia [Recovered/Resolved]
  - Dyspnoea [Recovered/Resolved]
  - Carotid artery occlusion [Recovered/Resolved]
  - Hemiparesis [Recovered/Resolved]
  - Mitral valve incompetence [Recovered/Resolved]
  - Cardiac failure acute [Recovered/Resolved]
  - Condition aggravated [Recovered/Resolved]
  - Systolic dysfunction [Recovered/Resolved]
  - Tricuspid valve incompetence [Recovered/Resolved]
